FAERS Safety Report 24981480 (Version 1)
Quarter: 2025Q1

REPORT INFORMATION
  Report Type: Spontaneous
  Country: US (occurrence: None)
  Receive Date: 20250217
  Receipt Date: 20250217
  Transmission Date: 20250409
  Serious: Yes (Disabling)
  Sender: FDA-CTU
  Company Number: None

PATIENT
  Age: 68 Year
  Sex: Female
  Weight: 81 kg

DRUGS (7)
  1. LEVOFLOXACIN [Suspect]
     Active Substance: LEVOFLOXACIN
     Indication: Spinal cord infection
     Dates: start: 20210701, end: 20220701
  2. HYDROCODONE [Concomitant]
     Active Substance: HYDROCODONE
  3. FUROSEMIDE [Concomitant]
     Active Substance: FUROSEMIDE
  4. LOSARTAN [Concomitant]
     Active Substance: LOSARTAN
  5. METOPROLOL [Concomitant]
     Active Substance: METOPROLOL
  6. ATORVASTATIN [Concomitant]
     Active Substance: ATORVASTATIN
  7. PRILOSEC [Concomitant]
     Active Substance: OMEPRAZOLE MAGNESIUM

REACTIONS (8)
  - Rotator cuff syndrome [None]
  - Neuropathy peripheral [None]
  - Parkinson^s disease [None]
  - Foot deformity [None]
  - Localised infection [None]
  - Toe amputation [None]
  - Tendon pain [None]
  - Gait disturbance [None]

NARRATIVE: CASE EVENT DATE: 20220201
